FAERS Safety Report 25947131 (Version 1)
Quarter: 2025Q4

REPORT INFORMATION
  Report Type: Spontaneous
  Country: US (occurrence: US)
  Receive Date: 20251022
  Receipt Date: 20251022
  Transmission Date: 20260118
  Serious: No
  Sender: ROCHE
  Company Number: US-ROCHE-10000412925

PATIENT
  Age: 83 Year
  Sex: Female

DRUGS (1)
  1. ACTEMRA [Suspect]
     Active Substance: TOCILIZUMAB
     Indication: Giant cell arteritis
     Route: 058
     Dates: start: 20251015

REACTIONS (4)
  - Exposure via skin contact [Unknown]
  - Product use complaint [Unknown]
  - No adverse event [Unknown]
  - Needle issue [Unknown]

NARRATIVE: CASE EVENT DATE: 20251015
